FAERS Safety Report 15835929 (Version 1)
Quarter: 2019Q1

REPORT INFORMATION
  Report Type: Spontaneous
  Country: US (occurrence: US)
  Receive Date: 20190117
  Receipt Date: 20190117
  Transmission Date: 20190417
  Serious: Yes (Other)
  Sender: FDA-Public Use
  Company Number: US-009507513-1901USA003477

PATIENT
  Age: 25 Year
  Sex: Female

DRUGS (1)
  1. NEXPLANON [Suspect]
     Active Substance: ETONOGESTREL
     Indication: CONTRACEPTION
     Dosage: 1 IMPLANT, EVERY 3 YEARS, SUBDERMAL NON DOMINANT ARM INNER SIDE OVER THE TRICEP MUSCLE
     Route: 059
     Dates: start: 20181218, end: 20190109

REACTIONS (5)
  - Implant site erythema [Unknown]
  - Device dislocation [Recovered/Resolved]
  - Device expulsion [Recovered/Resolved]
  - Implant site bruising [Unknown]
  - Implant site reaction [Unknown]

NARRATIVE: CASE EVENT DATE: 20181218
